FAERS Safety Report 17535970 (Version 1)
Quarter: 2020Q1

REPORT INFORMATION
  Report Type: Spontaneous
  Country: JP (occurrence: JP)
  Receive Date: 20200313
  Receipt Date: 20200313
  Transmission Date: 20200409
  Serious: Yes (Other)
  Sender: FDA-Public Use
  Company Number: JP-AMGEN-JPNSP2020041671

PATIENT

DRUGS (3)
  1. RAMUCIRUMAB RECOMBINANT [Concomitant]
     Active Substance: RAMUCIRUMAB
     Indication: SMALL INTESTINE CARCINOMA
     Dosage: UNK
     Route: 041
  2. G-LASTA [Suspect]
     Active Substance: PEGFILGRASTIM
     Indication: PRODUCT USED FOR UNKNOWN INDICATION
     Dosage: UNK
     Route: 058
  3. PACLITAXEL. [Concomitant]
     Active Substance: PACLITAXEL
     Indication: SMALL INTESTINE CARCINOMA
     Dosage: UNK
     Route: 041

REACTIONS (2)
  - Off label use [Unknown]
  - Chemotherapy [Unknown]
